FAERS Safety Report 20489185 (Version 1)
Quarter: 2022Q1

REPORT INFORMATION
  Report Type: Spontaneous
  Country: US (occurrence: US)
  Receive Date: 20220218
  Receipt Date: 20220218
  Transmission Date: 20220423
  Serious: Yes (Other)
  Sender: FDA-Public Use
  Company Number: US-JNJFOC-20220225575

PATIENT
  Age: 49 Year
  Sex: Male

DRUGS (9)
  1. STELARA [Suspect]
     Active Substance: USTEKINUMAB
     Indication: Product used for unknown indication
     Route: 058
  2. HUMIRA [Suspect]
     Active Substance: ADALIMUMAB
     Indication: Product used for unknown indication
     Route: 058
     Dates: start: 2010, end: 2017
  3. HUMIRA [Suspect]
     Active Substance: ADALIMUMAB
     Route: 058
     Dates: start: 202003
  4. ENTYVIO [Suspect]
     Active Substance: VEDOLIZUMAB
     Route: 065
  5. IRON [Concomitant]
     Active Substance: IRON
  6. ERGOCALCIFEROL [Concomitant]
     Active Substance: ERGOCALCIFEROL
  7. IMURAN [Concomitant]
     Active Substance: AZATHIOPRINE
  8. FISH OIL [Concomitant]
     Active Substance: FISH OIL
  9. TUMS [Concomitant]
     Active Substance: CALCIUM CARBONATE

REACTIONS (2)
  - Cataract [Not Recovered/Not Resolved]
  - Rash [Recovering/Resolving]
